FAERS Safety Report 6369711-5 (Version None)
Quarter: 2009Q3

REPORT INFORMATION
  Report Type: 
  Country: None (occurrence: None)
  Receive Date: 20090923
  Receipt Date: 20090910
  Transmission Date: 20100115
  Serious: Yes (Hospitalization)
  Sender: FDA-Public Use
  Company Number: US-PFIZER INC-2008036463

PATIENT
  Sex: Male

DRUGS (14)
  1. SUNITINIB MALATE [Suspect]
     Indication: PANCREATIC CARCINOMA
     Dosage: 50 MG, DAYS 1-14 EVERY 3 WEEKS
     Route: 048
     Dates: start: 20080325, end: 20080427
  2. GEMCITABINE [Suspect]
     Indication: PANCREATIC CARCINOMA
     Dosage: 1250 MG/M2, DAYS 1 AND 8 EVERY 3 WEEKS
     Route: 042
     Dates: start: 20080324, end: 20080421
  3. AVAPRO [Concomitant]
     Indication: HYPERTENSION
     Route: 048
  4. MIRALAX [Concomitant]
     Indication: CONSTIPATION
     Route: 048
     Dates: start: 20080311
  5. OXYCODONE [Concomitant]
     Indication: ABDOMINAL PAIN
     Dosage: 2,EVERY 4H AS NEEDED
     Route: 048
     Dates: start: 20080311
  6. OXYCONTIN [Concomitant]
     Indication: ABDOMINAL PAIN
     Route: 048
     Dates: start: 20080311
  7. REGLAN [Concomitant]
     Indication: HICCUPS
     Route: 048
     Dates: start: 20080325
  8. RITALIN [Concomitant]
     Indication: DECREASED APPETITE
     Dosage: QAM
     Route: 048
     Dates: start: 20080414
  9. TOPROL-XL [Concomitant]
     Indication: HYPERTENSION
     Route: 048
  10. TYLENOL (CAPLET) [Concomitant]
     Indication: ABDOMINAL PAIN
     Route: 048
     Dates: start: 20080324
  11. ZOFRAN [Concomitant]
     Indication: PROPHYLAXIS OF NAUSEA AND VOMITING
     Dosage: Q8H AS NEEDED
     Route: 048
     Dates: start: 20080324
  12. DEXAMETHASONE [Concomitant]
     Indication: PROPHYLAXIS
     Route: 048
     Dates: start: 20080421, end: 20080421
  13. AFRIN [Concomitant]
     Indication: EPISTAXIS
     Route: 045
     Dates: start: 20080427, end: 20080427
  14. LANTUS [Concomitant]
     Indication: DIABETES MELLITUS
     Dosage: 25 UNITS
     Route: 058

REACTIONS (1)
  - CEREBROVASCULAR ACCIDENT [None]
